FAERS Safety Report 6134440-X (Version None)
Quarter: 2009Q1

REPORT INFORMATION
  Report Type: 
  Country: None (occurrence: None)
  Receive Date: 20090327
  Receipt Date: 20090319
  Transmission Date: 20090719
  Serious: Yes (Hospitalization, Other)
  Sender: FDA-Public Use
  Company Number: US-AMGEN-QUU339310

PATIENT
  Sex: Female

DRUGS (1)
  1. ENBREL [Suspect]
     Indication: PSORIASIS
     Route: 058

REACTIONS (5)
  - EYE HAEMORRHAGE [None]
  - GLAUCOMA [None]
  - HIATUS HERNIA [None]
  - OCULAR VASCULAR DISORDER [None]
  - PSORIASIS [None]
